FAERS Safety Report 4744162-5 (Version None)
Quarter: 2005Q3

REPORT INFORMATION
  Report Type: 
  Country: None (occurrence: None)
  Receive Date: 20050812
  Receipt Date: 20050801
  Transmission Date: 20060218
  Serious: Yes (Hospitalization)
  Sender: FDA-Public Use
  Company Number: JP-JNJFOC-20050800013

PATIENT
  Age: 26 Year
  Sex: Female

DRUGS (6)
  1. TAVANIC [Suspect]
     Route: 048
     Dates: start: 20050501, end: 20050603
  2. RIMACTANE [Suspect]
     Route: 048
  3. RIMACTANE [Suspect]
     Dosage: ERROR IN DOSE. REDUCED TO 450 MG BID ON UNKNOWN DATE
     Route: 048
  4. METHOTREXATE [Concomitant]
     Route: 048
  5. ACETAMINOPHEN [Concomitant]
     Route: 048
     Dates: start: 20050501, end: 20050501
  6. FRAGMIN [Concomitant]
     Route: 058
     Dates: start: 20050501, end: 20050501

REACTIONS (1)
  - BENIGN INTRACRANIAL HYPERTENSION [None]
